FAERS Safety Report 18434409 (Version 4)
Quarter: 2020Q4

REPORT INFORMATION
  Report Type: Report from Study
  Country: US (occurrence: US)
  Receive Date: 20201027
  Receipt Date: 20201212
  Transmission Date: 20210114
  Serious: Yes (Hospitalization)
  Sender: FDA-Public Use
  Company Number: NVSC2020US284297

PATIENT
  Sex: Female

DRUGS (1)
  1. ENTRESTO [Suspect]
     Active Substance: SACUBITRIL\VALSARTAN
     Indication: PRODUCT USED FOR UNKNOWN INDICATION
     Dosage: 50 MG (24/26 MG), BID
     Route: 048

REACTIONS (14)
  - Dehydration [Unknown]
  - Large intestine polyp [Unknown]
  - Insomnia [Unknown]
  - Hypertension [Unknown]
  - Sinus disorder [Unknown]
  - Wheezing [Unknown]
  - Arthralgia [Unknown]
  - Weight decreased [Unknown]
  - Abdominal discomfort [Unknown]
  - Amnesia [Unknown]
  - Pain in extremity [Unknown]
  - Contusion [Unknown]
  - Peripheral swelling [Recovering/Resolving]
  - Dyspnoea [Unknown]
